FAERS Safety Report 23762313 (Version 1)
Quarter: 2024Q2

REPORT INFORMATION
  Report Type: Report from Study
  Country: US (occurrence: US)
  Receive Date: 20240419
  Receipt Date: 20240419
  Transmission Date: 20240716
  Serious: Yes (Other)
  Sender: FDA-Public Use
  Company Number: US-BAYER-2024A054161

PATIENT
  Age: 71 Year
  Sex: Male

DRUGS (1)
  1. XOFIGO [Suspect]
     Active Substance: RADIUM RA-223 DICHLORIDE
     Indication: Hormone-refractory prostate cancer
     Dosage: 119.10 UCI, ONCE EVERY 28 DAYS
     Route: 042
     Dates: start: 20240221, end: 20240221

REACTIONS (3)
  - Illness [Unknown]
  - Nausea [Unknown]
  - Vomiting [Unknown]
